FAERS Safety Report 6127123-3 (Version None)
Quarter: 2009Q1

REPORT INFORMATION
  Report Type: 
  Country: None (occurrence: None)
  Receive Date: 20090320
  Receipt Date: 20090305
  Transmission Date: 20090719
  Serious: Yes (Other)
  Sender: FDA-Public Use
  Company Number: JP-PFIZER INC-2009169635

PATIENT

DRUGS (4)
  1. ZITHROMAX [Suspect]
     Indication: PNEUMONIA
     Dosage: UNK
     Route: 048
     Dates: start: 20090122, end: 20090124
  2. CRAVIT [Suspect]
     Dosage: UNK
     Route: 048
     Dates: start: 20090119, end: 20090121
  3. AVELOX [Suspect]
     Dosage: UNK
     Route: 048
     Dates: start: 20081218, end: 20081224
  4. MINOCYCLINE HCL [Suspect]
     Indication: RHEUMATOID ARTHRITIS
     Dosage: UNK
     Dates: start: 20070501, end: 20090130

REACTIONS (2)
  - HEPATIC FUNCTION ABNORMAL [None]
  - INTERSTITIAL LUNG DISEASE [None]
